FAERS Safety Report 9286136 (Version 1)
Quarter: 2013Q2

REPORT INFORMATION
  Report Type: Spontaneous
  Country: US (occurrence: None)
  Receive Date: 20130510
  Receipt Date: 20130510
  Transmission Date: 20140414
  Serious: Yes (Hospitalization)
  Sender: FDA-Public Use
  Company Number: None

PATIENT
  Age: 74 Year
  Sex: Female
  Weight: 61.6 kg

DRUGS (2)
  1. GEMCITABINE [Suspect]
     Dosage: CYCLE 1 IS 7 WEEKS LONG.  THE SUBJECT IS GIVEN GEMCITABINE 1000 MG/M2 INTRAVENOUSLY, ON DAYS 1, 8, 15, 29, 36
  2. OSI-774 (ERLOTINIB; TARCEVA) [Suspect]

REACTIONS (1)
  - Nausea [None]
